FAERS Safety Report 10040619 (Version 1)
Quarter: 2014Q1

REPORT INFORMATION
  Report Type: Spontaneous
  Country: US (occurrence: US)
  Receive Date: 20140327
  Receipt Date: 20140327
  Transmission Date: 20141002
  Serious: Yes (Disabling, Other)
  Sender: FDA-Public Use
  Company Number: US-GLAXOSMITHKLINE-A1056777A

PATIENT
  Sex: 0

DRUGS (3)
  1. MEKINIST [Suspect]
     Indication: METASTATIC MALIGNANT MELANOMA
     Route: 065
  2. TAFINLAR [Suspect]
     Indication: METASTATIC MALIGNANT MELANOMA
     Route: 065
  3. UNKNOWN MEDICATION [Concomitant]

REACTIONS (2)
  - Pyrexia [Unknown]
  - Platelet count decreased [Unknown]
